FAERS Safety Report 23561808 (Version 2)
Quarter: 2024Q1

REPORT INFORMATION
  Report Type: Report from Study
  Country: NL (occurrence: NL)
  Receive Date: 20240225
  Receipt Date: 20240229
  Transmission Date: 20240410
  Serious: Yes (Death)
  Sender: FDA-Public Use
  Company Number: NL-ABBVIE-5652307

PATIENT
  Age: 77 Year
  Sex: Male

DRUGS (4)
  1. CARBIDOPA\LEVODOPA [Suspect]
     Active Substance: CARBIDOPA\LEVODOPA
     Indication: Parkinson^s disease
     Dosage: DURATION TEXT: REMAINS AT 16 HOURS
     Route: 050
     Dates: start: 20180820
  2. CARBIDOPA\LEVODOPA [Suspect]
     Active Substance: CARBIDOPA\LEVODOPA
     Dosage: MD: 4.0ML, CD: 3.8ML/H, ED: 3.0ML
     Route: 050
     Dates: start: 20230719, end: 20240126
  3. MOVICOLON [Concomitant]
     Active Substance: POLYETHYLENE GLYCOL 3350\POTASSIUM CHLORIDE\SODIUM BICARBONATE\SODIUM CHLORIDE
     Indication: Abnormal faeces
  4. POLYETHYLENE GLYCOLS [Concomitant]
     Active Substance: POLYETHYLENE GLYCOLS
     Indication: Abnormal faeces

REACTIONS (1)
  - Death [Fatal]
